FAERS Safety Report 16500358 (Version 1)
Quarter: 2019Q2

REPORT INFORMATION
  Report Type: Spontaneous
  Country: US (occurrence: US)
  Receive Date: 20190520
  Receipt Date: 20190520
  Transmission Date: 20190711
  Serious: Yes (Hospitalization)
  Sender: FDA-Public Use
  Company Number: None

PATIENT
  Age: 63 Year
  Sex: Male

DRUGS (13)
  1. FEROSUL [Concomitant]
  2. MELOXICAM. [Concomitant]
     Active Substance: MELOXICAM
  3. FENOFIBRATE. [Concomitant]
     Active Substance: FENOFIBRATE
  4. LYRICA [Concomitant]
     Active Substance: PREGABALIN
  5. IBUPROFEN. [Concomitant]
     Active Substance: IBUPROFEN
  6. OMEPRAZOLE. [Concomitant]
     Active Substance: OMEPRAZOLE
  7. TRU METRIX TES GLUCOSE [Concomitant]
  8. PHENTERMINE. [Concomitant]
     Active Substance: PHENTERMINE
  9. STELARA [Suspect]
     Active Substance: USTEKINUMAB
     Indication: PRODUCT USED FOR UNKNOWN INDICATION
     Dosage: INJ 1 SYR Q 3 MNTS SC?
     Route: 058
     Dates: start: 20171208, end: 20190308
  10. SIMVASTATIN. [Concomitant]
     Active Substance: SIMVASTATIN
  11. CYCLOBENZAPR [Concomitant]
     Active Substance: CYCLOBENZAPRINE
  12. PIOGLITAZONE. [Concomitant]
     Active Substance: PIOGLITAZONE
  13. TRULICITY [Concomitant]
     Active Substance: DULAGLUTIDE

REACTIONS (2)
  - Infection [None]
  - Knee arthroplasty [None]

NARRATIVE: CASE EVENT DATE: 20190308
